FAERS Safety Report 7309555 (Version 4)
Quarter: 2015Q4

REPORT INFORMATION
  Report Type: Spontaneous
  Country: IE (occurrence: IE)
  Receive Date: 20100309
  Receipt Date: 20151030
  Transmission Date: 20160305
  Serious: Yes (Other)
  Sender: FDA-Public Use
  Company Number: IE-BRISTOL-MYERS SQUIBB COMPANY-15004955

PATIENT
  Age: 32 Year
  Sex: Female
  Weight: 71 kg

DRUGS (3)
  1. RETROVIR [Suspect]
     Active Substance: ZIDOVUDINE
     Indication: HIV INFECTION
     Dosage: 300 MG, QD
     Route: 048
     Dates: start: 20070531, end: 20070904
  2. TRUVADA [Suspect]
     Active Substance: EMTRICITABINE\TENOFOVIR DISOPROXIL FUMARATE
     Indication: HIV INFECTION
     Dosage: 1 DF, QD
     Route: 048
     Dates: start: 20070531, end: 20070904
  3. ATAZANAVIR SULFATE [Suspect]
     Active Substance: ATAZANAVIR SULFATE
     Indication: HIV INFECTION
     Dosage: 300 MG, QD
     Route: 048
     Dates: start: 20070531, end: 20070904

REACTIONS (3)
  - Normal newborn [Unknown]
  - Maternal exposure during pregnancy [Recovered/Resolved]
  - Caesarean section [Unknown]

NARRATIVE: CASE EVENT DATE: 20070904
